FAERS Safety Report 7464472-0 (Version None)
Quarter: 2011Q2

REPORT INFORMATION
  Report Type: 
  Country: None (occurrence: None)
  Receive Date: 20110509
  Receipt Date: 20110505
  Transmission Date: 20111010
  Serious: No
  Sender: FDA-Public Use
  Company Number: US-PFIZER INC-2011096968

PATIENT
  Sex: Male

DRUGS (2)
  1. ZOLOFT [Suspect]
     Dosage: UNK
  2. PRILOSEC [Suspect]
     Dosage: UNK

REACTIONS (2)
  - ULCER [None]
  - GASTROOESOPHAGEAL REFLUX DISEASE [None]
